FAERS Safety Report 9017566 (Version 3)
Quarter: 2013Q2

REPORT INFORMATION
  Report Type: Spontaneous
  Country: US (occurrence: US)
  Receive Date: 20130117
  Receipt Date: 20130620
  Transmission Date: 20140414
  Serious: Yes (Other)
  Sender: FDA-Public Use
  Company Number: US-PERRIGO-13US000184

PATIENT
  Age: 74 Year
  Sex: Female
  Weight: 90.7 kg

DRUGS (4)
  1. ACETAMINOPHEN 500MG 484 [Suspect]
     Indication: PAIN IN EXTREMITY
     Dosage: 1000 MG, PRN
     Route: 048
     Dates: start: 201207, end: 20130107
  2. COUMADIN [Suspect]
     Indication: PRODUCT USED FOR UNKNOWN INDICATION
     Dosage: UNK, UNK
     Route: 065
     Dates: start: 201101
  3. CYMBALTA [Concomitant]
     Indication: DEPRESSION
     Dosage: UNK
     Route: 065
  4. LAMOTRIGINE [Concomitant]
     Indication: DEPRESSION
     Dosage: UNK
     Route: 065

REACTIONS (2)
  - Deep vein thrombosis [Not Recovered/Not Resolved]
  - Drug interaction [Unknown]
